FAERS Safety Report 17139165 (Version 2)
Quarter: 2020Q4

REPORT INFORMATION
  Report Type: Spontaneous
  Country: US (occurrence: US)
  Receive Date: 20191211
  Receipt Date: 20201123
  Transmission Date: 20210113
  Serious: Yes (Death, Other)
  Sender: FDA-Public Use
  Company Number: US-SUN PHARMACEUTICAL INDUSTRIES LTD-2019R1-230252

PATIENT
  Age: 12 Year
  Sex: Male

DRUGS (1)
  1. CARBIDOPA AND LEVODOPA [Suspect]
     Active Substance: CARBIDOPA\LEVODOPA
     Indication: PARKINSONISM
     Dosage: UNK
     Route: 065

REACTIONS (6)
  - Respiratory failure [Fatal]
  - Dyskinesia [Unknown]
  - Dystonia [Unknown]
  - Nervous system disorder [Unknown]
  - On and off phenomenon [Unknown]
  - Psychotic disorder [Unknown]
